FAERS Safety Report 9109856 (Version 2)
Quarter: 2013Q1

REPORT INFORMATION
  Report Type: Spontaneous
  Country: FR (occurrence: FR)
  Receive Date: 20130222
  Receipt Date: 20130305
  Transmission Date: 20140127
  Serious: Yes (Death)
  Sender: FDA-Public Use
  Company Number: FR-JNJFOC-20130204224

PATIENT
  Age: 84 Year
  Sex: Male
  Weight: 40 kg

DRUGS (21)
  1. HALDOL [Suspect]
     Indication: AGITATION
     Route: 048
     Dates: start: 20120725, end: 20120726
  2. HALDOL [Suspect]
     Indication: AGITATION
     Route: 048
     Dates: start: 20120726, end: 20120811
  3. HALDOL [Suspect]
     Indication: AGITATION
     Route: 048
     Dates: start: 20120813
  4. HALDOL [Suspect]
     Indication: AGITATION
     Route: 048
     Dates: start: 20120811, end: 20120813
  5. EBIXA [Suspect]
     Indication: VASCULAR DEMENTIA
     Dosage: AT MID DAY
     Route: 065
     Dates: start: 20120816
  6. SERESTA [Concomitant]
     Indication: ANXIETY
     Dosage: HALF DOSE IN THE MORNING AND 1 DOSE IN THE EVENING
     Route: 048
     Dates: start: 20120717
  7. SERESTA [Concomitant]
     Indication: ANXIETY
     Route: 048
     Dates: start: 20120621, end: 20120717
  8. LERCAN [Concomitant]
     Indication: PRODUCT USED FOR UNKNOWN INDICATION
     Route: 065
     Dates: start: 20120615
  9. SEROPLEX [Concomitant]
     Indication: PRODUCT USED FOR UNKNOWN INDICATION
     Route: 065
     Dates: start: 20120615
  10. ATROVENT [Concomitant]
     Indication: PRODUCT USED FOR UNKNOWN INDICATION
     Route: 065
     Dates: start: 20120615
  11. OXYGEN [Concomitant]
     Indication: PRODUCT USED FOR UNKNOWN INDICATION
     Route: 045
     Dates: start: 20120615
  12. TIAPRIDAL [Concomitant]
     Indication: AGITATION
     Dosage: AT BED TIME
     Route: 030
     Dates: start: 20120724, end: 20120725
  13. TIAPRIDAL [Concomitant]
     Indication: AGITATION
     Route: 030
     Dates: start: 20120615, end: 20120719
  14. TIAPRIDAL [Concomitant]
     Indication: FALL
     Dosage: AT BED TIME
     Route: 030
     Dates: start: 20120724, end: 20120725
  15. TIAPRIDAL [Concomitant]
     Indication: FALL
     Route: 030
     Dates: start: 20120615, end: 20120719
  16. CEFTRIAXONE [Concomitant]
     Indication: PRODUCT USED FOR UNKNOWN INDICATION
     Route: 030
     Dates: start: 20120713
  17. OFLOXACINE [Concomitant]
     Indication: PRODUCT USED FOR UNKNOWN INDICATION
     Route: 065
     Dates: start: 20120715
  18. RISPERDAL [Concomitant]
     Indication: PRODUCT USED FOR UNKNOWN INDICATION
     Route: 048
     Dates: start: 20120719, end: 20120725
  19. DOLIPRANE [Concomitant]
     Indication: PYREXIA
     Route: 065
  20. UVEDOSE [Concomitant]
     Indication: PRODUCT USED FOR UNKNOWN INDICATION
     Route: 065
  21. TERBUTALINE [Concomitant]
     Indication: PRODUCT USED FOR UNKNOWN INDICATION
     Route: 065
     Dates: start: 20120615

REACTIONS (6)
  - Sudden death [Fatal]
  - Obstructive airways disorder [Unknown]
  - Bronchial obstruction [Unknown]
  - Rhonchi [Unknown]
  - Tachypnoea [Unknown]
  - Somnolence [Unknown]
